FAERS Safety Report 17448879 (Version 2)
Quarter: 2020Q2

REPORT INFORMATION
  Report Type: Report from Study
  Country: CA (occurrence: CA)
  Receive Date: 20200224
  Receipt Date: 20200515
  Transmission Date: 20200713
  Serious: Yes (Hospitalization)
  Sender: FDA-Public Use
  Company Number: CA-ROCHE-2257921

PATIENT
  Age: 90 Year
  Sex: Female

DRUGS (19)
  1. PROTOPIC [Concomitant]
     Active Substance: TACROLIMUS
  2. NORVASC [Concomitant]
     Active Substance: AMLODIPINE BESYLATE
  3. BETADERM [BETAMETHASONE VALERATE] [Concomitant]
  4. SOLU-MEDROL [Concomitant]
     Active Substance: METHYLPREDNISOLONE SODIUM SUCCINATE
     Indication: PREMEDICATION
     Dosage: ONGOING
     Route: 042
     Dates: start: 20180807
  5. PREDNISONE. [Concomitant]
     Active Substance: PREDNISONE
  6. ATIVAN [Concomitant]
     Active Substance: LORAZEPAM
  7. SYNTHROID [Concomitant]
     Active Substance: LEVOTHYROXINE SODIUM
  8. ASA [Concomitant]
     Active Substance: ASPIRIN
  9. ACETYLSALICYLIC ACID [Concomitant]
     Active Substance: ASPIRIN
  10. BENADRYL [Concomitant]
     Active Substance: DIPHENHYDRAMINE HYDROCHLORIDE
     Indication: PREMEDICATION
     Dosage: ONGOING
     Route: 042
     Dates: start: 20180807
  11. RISEDRONATE [Concomitant]
     Active Substance: RISEDRONATE SODIUM
  12. MOMETASONE [Concomitant]
     Active Substance: MOMETASONE
  13. SULFATRIM [Concomitant]
     Active Substance: SULFAMETHOXAZOLE\TRIMETHOPRIM
  14. CARDURA [Concomitant]
     Active Substance: DOXAZOSIN MESYLATE
     Dosage: 1 MG AT BED TIME
     Route: 065
  15. BACTRIM [Concomitant]
     Active Substance: SULFAMETHOXAZOLE\TRIMETHOPRIM
     Dosage: SINGLE DOSE ONE TABLET
     Route: 065
  16. D-TABS [Concomitant]
     Active Substance: CHOLECALCIFEROL
     Dosage: 10 000 UNITS ONCE A WEEK;
     Route: 065
  17. RITUXAN [Suspect]
     Active Substance: RITUXIMAB
     Indication: GRANULOMATOSIS WITH POLYANGIITIS
     Dosage: ONGOING
     Route: 042
     Dates: start: 20180807
  18. TYLENOL [Concomitant]
     Active Substance: ACETAMINOPHEN
     Indication: PREMEDICATION
     Route: 048
     Dates: start: 20180807
  19. PANTOLOC [PANTOPRAZOLE] [Concomitant]
     Active Substance: PANTOPRAZOLE SODIUM

REACTIONS (11)
  - Blood pressure systolic increased [Not Recovered/Not Resolved]
  - Respiratory distress [Unknown]
  - Oedema peripheral [Unknown]
  - Arthralgia [Not Recovered/Not Resolved]
  - Infusion related reaction [Unknown]
  - Dyspnoea [Not Recovered/Not Resolved]
  - Off label use [Unknown]
  - Intentional product misuse [Unknown]
  - Blood pressure diastolic abnormal [Unknown]
  - Oxygen saturation decreased [Unknown]
  - Blood pressure diastolic decreased [Unknown]

NARRATIVE: CASE EVENT DATE: 20180807
